FAERS Safety Report 8428306-X (Version None)
Quarter: 2012Q2

REPORT INFORMATION
  Report Type: 
  Country: None (occurrence: None)
  Receive Date: 20120611
  Receipt Date: 20120608
  Transmission Date: 20120825
  Serious: Yes (Death, Hospitalization, Other)
  Sender: FDA-Public Use
  Company Number: JP-ABBOTT-11P-087-0856263-00

PATIENT
  Sex: Male

DRUGS (4)
  1. FAMOTIDINE [Concomitant]
     Indication: GASTRITIS PROPHYLAXIS
     Route: 048
     Dates: start: 20080715, end: 20110908
  2. ATORVASTATIN CALCIUM [Concomitant]
     Indication: HYPERLIPIDAEMIA
     Route: 048
     Dates: start: 20100405, end: 20110908
  3. DICLOFENAC SODIUM [Concomitant]
     Indication: RHEUMATOID ARTHRITIS
     Dosage: AS DIRECTED BY A PHYSICIAN
     Route: 061
     Dates: start: 20100510, end: 20110908
  4. HUMIRA [Suspect]
     Indication: RHEUMATOID ARTHRITIS
     Route: 058
     Dates: start: 20110419, end: 20110905

REACTIONS (17)
  - DYSPNOEA [None]
  - DISSEMINATED INTRAVASCULAR COAGULATION [None]
  - INTERSTITIAL LUNG DISEASE [None]
  - PYREXIA [None]
  - WHITE BLOOD CELL COUNT INCREASED [None]
  - PULMONARY ALVEOLAR HAEMORRHAGE [None]
  - BETA HAEMOLYTIC STREPTOCOCCAL INFECTION [None]
  - STREPTOCOCCAL SEPSIS [None]
  - BLOOD CREATININE INCREASED [None]
  - ANURIA [None]
  - HAEMOPTYSIS [None]
  - ACUTE PRERENAL FAILURE [None]
  - SHOCK [None]
  - HYPOXIA [None]
  - ACIDOSIS [None]
  - NEUTROPHIL COUNT INCREASED [None]
  - DIFFUSE ALVEOLAR DAMAGE [None]
